FAERS Safety Report 7279904-0 (Version None)
Quarter: 2011Q1

REPORT INFORMATION
  Report Type: 
  Country: None (occurrence: None)
  Receive Date: 20110208
  Receipt Date: 20101216
  Transmission Date: 20110831
  Serious: Yes (Hospitalization, Other)
  Sender: FDA-Public Use
  Company Number: US-BAYER-201018457NA

PATIENT
  Sex: Female
  Weight: 152.73 kg

DRUGS (7)
  1. YAZ [Suspect]
     Indication: PRODUCT USED FOR UNKNOWN INDICATION
     Dates: start: 20051101
  2. AMOXICILLIN [Concomitant]
     Dosage: 875 MG, BID
  3. LEVOTHYROXINE SODIUM [Concomitant]
  4. IBUPROFEN [Concomitant]
  5. WARFARIN [Concomitant]
     Dosage: UNK
     Dates: start: 20091101, end: 20100501
  6. YASMIN [Suspect]
     Indication: PRODUCT USED FOR UNKNOWN INDICATION
     Dates: start: 20051001
  7. PREDNISONE [Concomitant]

REACTIONS (3)
  - PULMONARY EMBOLISM [None]
  - GALLBLADDER DISORDER [None]
  - DEEP VEIN THROMBOSIS [None]
